FAERS Safety Report 15079826 (Version 1)
Quarter: 2018Q2

REPORT INFORMATION
  Report Type: Spontaneous
  Country: US (occurrence: US)
  Receive Date: 20180607
  Receipt Date: 20180607
  Transmission Date: 20180711
  Serious: Yes (Life-Threatening, Other)
  Sender: FDA-Public Use
  Company Number: None

PATIENT
  Age: 26 Year
  Sex: Male
  Weight: 56.25 kg

DRUGS (3)
  1. SUBOXONE [Concomitant]
     Active Substance: BUPRENORPHINE HYDROCHLORIDE\NALOXONE HYDROCHLORIDE
  2. TYLONAL PM [Concomitant]
  3. SUBOXONE [Suspect]
     Active Substance: BUPRENORPHINE HYDROCHLORIDE\NALOXONE HYDROCHLORIDE
     Indication: DRUG DEPENDENCE
     Dosage: ?          OTHER STRENGTH:50;QUANTITY:1 30;?
     Route: 048

REACTIONS (6)
  - Drug ineffective [None]
  - Loss of personal independence in daily activities [None]
  - Drug dependence [None]
  - Drug withdrawal syndrome [None]
  - Headache [None]
  - Amnesia [None]

NARRATIVE: CASE EVENT DATE: 20180607
